FAERS Safety Report 13637454 (Version 2)
Quarter: 2017Q3

REPORT INFORMATION
  Report Type: Spontaneous
  Country: US (occurrence: US)
  Receive Date: 20170609
  Receipt Date: 20170911
  Transmission Date: 20171127
  Serious: No
  Sender: FDA-Public Use
  Company Number: US-ASTELLAS-2017US022352

PATIENT
  Age: 66 Year
  Sex: Male

DRUGS (1)
  1. CRESEMBA [Suspect]
     Active Substance: ISAVUCONAZONIUM SULFATE
     Indication: LUNG INFECTION
     Route: 065

REACTIONS (12)
  - Hyperhidrosis [Unknown]
  - Confusional state [Unknown]
  - Constipation [Unknown]
  - Decreased appetite [Unknown]
  - Pyrexia [Unknown]
  - Headache [Recovered/Resolved]
  - Asthenia [Unknown]
  - Insomnia [Unknown]
  - Eructation [Unknown]
  - Tinnitus [Unknown]
  - Feeling hot [Unknown]
  - Dizziness [Unknown]
